FAERS Safety Report 4528016-5 (Version None)
Quarter: 2004Q4

REPORT INFORMATION
  Report Type: 
  Country: None (occurrence: None)
  Receive Date: 20041123
  Receipt Date: 20040415
  Transmission Date: 20050328
  Serious: Yes (Disabling, Other)
  Sender: FDA-Public Use
  Company Number: 2004018272

PATIENT
  Sex: Male
  Weight: 61.2356 kg

DRUGS (3)
  1. LIPITOR [Suspect]
     Indication: BLOOD CHOLESTEROL INCREASED
     Dosage: 10 MG (DAILY), ORAL
     Route: 048
     Dates: start: 20030601, end: 20040225
  2. ASPIRIN [Concomitant]
  3. SOTALOL HCL [Concomitant]

REACTIONS (11)
  - BLOOD CREATINE PHOSPHOKINASE INCREASED [None]
  - CACHEXIA [None]
  - DIFFICULTY IN WALKING [None]
  - DYSPHAGIA [None]
  - FATIGUE [None]
  - HYPOTONIA [None]
  - LIMB DISCOMFORT [None]
  - NASAL DISCOMFORT [None]
  - PAIN IN EXTREMITY [None]
  - RHABDOMYOLYSIS [None]
  - WEIGHT DECREASED [None]
